FAERS Safety Report 15167382 (Version 1)
Quarter: 2018Q3

REPORT INFORMATION
  Report Type: Spontaneous
  Country: GB (occurrence: GB)
  Receive Date: 20180719
  Receipt Date: 20180719
  Transmission Date: 20181010
  Serious: Yes (Hospitalization, Other)
  Sender: FDA-Public Use
  Company Number: GB-MYLANLABS-2018M1051292

PATIENT

DRUGS (1)
  1. METHOTREXATE. [Suspect]
     Active Substance: METHOTREXATE
     Indication: PRODUCT USED FOR UNKNOWN INDICATION
     Dosage: 10 TABLETS, EACH CONTAINING 2.5 MG
     Route: 048

REACTIONS (3)
  - Accidental exposure to product [Recovered/Resolved]
  - Accidental overdose [Recovered/Resolved]
  - Blood alkaline phosphatase increased [Recovered/Resolved]
